FAERS Safety Report 4490279-2 (Version None)
Quarter: 2004Q4

REPORT INFORMATION
  Report Type: 
  Country: None (occurrence: None)
  Receive Date: 20041101
  Receipt Date: 20040510
  Transmission Date: 20050328
  Serious: Yes (Death, Hospitalization)
  Sender: FDA-Public Use
  Company Number: US-MERCK-0405USA00640

PATIENT
  Age: 45 Year
  Sex: Female
  Weight: 82 kg

DRUGS (18)
  1. VIOXX [Suspect]
     Indication: RHEUMATOID ARTHRITIS
     Route: 048
  2. INSULIN HUMAN, ISOPHANE [Concomitant]
     Route: 058
  3. PREDNISONE [Concomitant]
     Route: 065
  4. ZAROXOLYN [Concomitant]
     Route: 065
  5. LIPITOR [Concomitant]
     Route: 065
  6. SPIRONOLACTONE [Concomitant]
     Route: 065
  7. WELLBUTRIN SR [Concomitant]
     Route: 065
  8. PREMPHASE 14/14 [Concomitant]
     Route: 065
  9. ACTONEL [Concomitant]
     Route: 065
  10. PLAQUENIL [Concomitant]
     Route: 065
  11. COLACE [Concomitant]
     Route: 065
  12. K-DUR 10 [Concomitant]
     Route: 065
  13. ULTRAM [Concomitant]
     Route: 048
  14. LASIX [Concomitant]
     Route: 065
  15. AZATHIOPRINE [Concomitant]
     Route: 048
  16. DIFLUCAN [Concomitant]
     Route: 065
  17. ZYBAN [Concomitant]
     Route: 065
  18. ACTIGALL [Concomitant]
     Route: 065

REACTIONS (7)
  - BRAIN STEM INFARCTION [None]
  - CARDIAC FAILURE CONGESTIVE [None]
  - CONVULSION [None]
  - LEUKOCYTOSIS [None]
  - RASH [None]
  - RESPIRATORY FAILURE [None]
  - SPLEEN DISORDER [None]
